FAERS Safety Report 8396401-X (Version None)
Quarter: 2012Q2

REPORT INFORMATION
  Report Type: 
  Country: None (occurrence: None)
  Receive Date: 20120530
  Receipt Date: 20120524
  Transmission Date: 20120825
  Serious: Yes (Hospitalization, Other)
  Sender: FDA-Public Use
  Company Number: GB-MERCK-1205USA01887

PATIENT
  Age: 67 Year
  Sex: Female

DRUGS (9)
  1. CITALOPRAM [Concomitant]
     Route: 065
  2. FOLIC ACID [Concomitant]
     Route: 065
  3. ACETAMINOPHEN AND CODEINE PHOSPHATE [Concomitant]
     Route: 065
  4. TEMAZEPAM [Concomitant]
     Route: 065
  5. THEOPHYLLINE [Concomitant]
     Route: 065
  6. DURAGESIC-100 [Concomitant]
     Route: 065
  7. DIAZEPAM [Concomitant]
     Route: 065
  8. FOSAMAX [Suspect]
     Route: 048
  9. CACIT VITAMINE D3 [Concomitant]
     Route: 065

REACTIONS (1)
  - EPISTAXIS [None]
